FAERS Safety Report 9632337 (Version 2)
Quarter: 2013Q4

REPORT INFORMATION
  Report Type: Spontaneous
  Country: US (occurrence: US)
  Receive Date: 20131018
  Receipt Date: 20131027
  Transmission Date: 20140711
  Serious: Yes (Other)
  Sender: FDA-Public Use
  Company Number: US-TEVA-438923USA

PATIENT
  Age: 27 Year
  Sex: Female
  Weight: 52.21 kg

DRUGS (3)
  1. PARAGARD 380A [Suspect]
     Indication: CONTRACEPTION
     Route: 015
     Dates: start: 20130917, end: 20131014
  2. SPIRONOLACTONE [Concomitant]
     Indication: HORMONE LEVEL ABNORMAL
  3. METFORMIN [Concomitant]
     Indication: HORMONE LEVEL ABNORMAL

REACTIONS (2)
  - Device dislocation [Recovered/Resolved]
  - Pelvic pain [Unknown]
